FAERS Safety Report 7390031-4 (Version None)
Quarter: 2011Q2

REPORT INFORMATION
  Report Type: 
  Country: None (occurrence: None)
  Receive Date: 20110401
  Receipt Date: 20110323
  Transmission Date: 20111010
  Serious: Yes (Hospitalization)
  Sender: FDA-Public Use
  Company Number: JP-ASTRAZENECA-2011SE15972

PATIENT
  Sex: Male
  Weight: 71 kg

DRUGS (3)
  1. LISITRIL [Concomitant]
     Indication: HYPERTENSION
     Route: 048
     Dates: start: 20100519
  2. BLOPRESS PLUS [Suspect]
     Indication: HYPERTENSION
     Dosage: 32/12.5 MG
     Route: 048
     Dates: start: 20100528
  3. ZANIDIP [Concomitant]
     Indication: HYPERTENSION
     Route: 048
     Dates: start: 20100528

REACTIONS (1)
  - CEREBROVASCULAR ACCIDENT [None]
